FAERS Safety Report 7575043-X (Version None)
Quarter: 2011Q2

REPORT INFORMATION
  Report Type: 
  Country: None (occurrence: None)
  Receive Date: 20110627
  Receipt Date: 20110617
  Transmission Date: 20111010
  Serious: Yes (Hospitalization)
  Sender: FDA-Public Use
  Company Number: PHHO2011FR09393

PATIENT
  Sex: Female
  Weight: 43 kg

DRUGS (7)
  1. PREDNISONE [Concomitant]
     Indication: RENAL TRANSPLANT
     Dosage: 10 MG, UNK
     Route: 048
     Dates: start: 20110406
  2. CELLCEPT [Concomitant]
     Indication: RENAL TRANSPLANT
     Dosage: 3 G, UNK
     Route: 048
     Dates: start: 20110402
  3. NEORAL [Suspect]
     Indication: RENAL TRANSPLANT
     Dosage: 150 MG, UNK
     Route: 048
     Dates: start: 20110403, end: 20110609
  4. VALACYCLOVIR [Concomitant]
  5. CALCIPARINE [Concomitant]
  6. NEXIUM [Concomitant]
  7. BACTRIM DS [Concomitant]

REACTIONS (2)
  - RENAL IMPAIRMENT [None]
  - GLOMERULONEPHRITIS [None]
